FAERS Safety Report 13500104 (Version 2)
Quarter: 2017Q2

REPORT INFORMATION
  Report Type: Spontaneous
  Country: FR (occurrence: FR)
  Receive Date: 20170501
  Receipt Date: 20170517
  Transmission Date: 20170830
  Serious: Yes (Other)
  Sender: FDA-Public Use
  Company Number: FR-PFIZER INC-2017179976

PATIENT
  Age: 88 Year
  Sex: Male

DRUGS (2)
  1. REMIFENTANIL [Concomitant]
     Active Substance: REMIFENTANIL
     Indication: SEDATION
  2. ADRIBLASTINE [Suspect]
     Active Substance: DOXORUBICIN
     Indication: HEPATOBILIARY CANCER
     Dosage: 75 MG, SINGLE
     Route: 013
     Dates: start: 20170411, end: 20170411

REACTIONS (6)
  - Headache [Recovered/Resolved]
  - Nausea [Recovered/Resolved]
  - Hypertension [Recovered/Resolved]
  - Tachycardia [Recovered/Resolved]
  - Dizziness [Recovered/Resolved]
  - Pyrexia [Recovered/Resolved]

NARRATIVE: CASE EVENT DATE: 20170411
